FAERS Safety Report 15688545 (Version 20)
Quarter: 2025Q3

REPORT INFORMATION
  Report Type: Spontaneous
  Country: CA (occurrence: CA)
  Receive Date: 20181205
  Receipt Date: 20250814
  Transmission Date: 20251021
  Serious: Yes (Hospitalization, Disabling, Other)
  Sender: BAUSCH AND LOMB
  Company Number: CA-BAUSCH-BL-2018-033498

PATIENT
  Age: 39 Year
  Sex: Female
  Weight: 119 kg

DRUGS (78)
  1. WELLBUTRIN XL [Suspect]
     Active Substance: BUPROPION HYDROCHLORIDE
     Indication: Product used for unknown indication
     Route: 065
  2. WELLBUTRIN XL [Suspect]
     Active Substance: BUPROPION HYDROCHLORIDE
     Route: 066
  3. WELLBUTRIN XL [Suspect]
     Active Substance: BUPROPION HYDROCHLORIDE
     Route: 065
  4. WELLBUTRIN XL [Suspect]
     Active Substance: BUPROPION HYDROCHLORIDE
     Route: 065
  5. WELLBUTRIN XL [Suspect]
     Active Substance: BUPROPION HYDROCHLORIDE
     Route: 066
  6. WELLBUTRIN XL [Suspect]
     Active Substance: BUPROPION HYDROCHLORIDE
     Route: 066
  7. WELLBUTRIN XL [Suspect]
     Active Substance: BUPROPION HYDROCHLORIDE
     Route: 065
  8. WELLBUTRIN XL [Suspect]
     Active Substance: BUPROPION HYDROCHLORIDE
     Route: 066
  9. WELLBUTRIN XL [Suspect]
     Active Substance: BUPROPION HYDROCHLORIDE
     Route: 066
  10. BUPROPION [Suspect]
     Active Substance: BUPROPION
     Indication: Product used for unknown indication
     Route: 065
  11. ABILIFY [Suspect]
     Active Substance: ARIPIPRAZOLE
     Indication: Product used for unknown indication
     Route: 065
  12. ABILIFY [Suspect]
     Active Substance: ARIPIPRAZOLE
     Route: 065
  13. ALPRAZOLAM [Suspect]
     Active Substance: ALPRAZOLAM
     Indication: Product used for unknown indication
     Route: 048
  14. ALPRAZOLAM [Suspect]
     Active Substance: ALPRAZOLAM
     Route: 065
  15. ALPRAZOLAM [Suspect]
     Active Substance: ALPRAZOLAM
     Route: 065
  16. ALPRAZOLAM [Suspect]
     Active Substance: ALPRAZOLAM
     Route: 065
  17. ALPRAZOLAM [Suspect]
     Active Substance: ALPRAZOLAM
     Route: 065
  18. PAROXETINE HYDROCHLORIDE [Suspect]
     Active Substance: PAROXETINE HYDROCHLORIDE
     Indication: Product used for unknown indication
     Route: 065
  19. PAROXETINE HYDROCHLORIDE [Suspect]
     Active Substance: PAROXETINE HYDROCHLORIDE
     Route: 065
  20. PAROXETINE HYDROCHLORIDE [Suspect]
     Active Substance: PAROXETINE HYDROCHLORIDE
     Route: 065
  21. PAROXETINE HYDROCHLORIDE [Suspect]
     Active Substance: PAROXETINE HYDROCHLORIDE
     Route: 065
  22. PAROXETINE HYDROCHLORIDE [Suspect]
     Active Substance: PAROXETINE HYDROCHLORIDE
     Route: 066
  23. PAROXETINE HYDROCHLORIDE [Suspect]
     Active Substance: PAROXETINE HYDROCHLORIDE
     Route: 065
  24. PAROXETINE HYDROCHLORIDE [Suspect]
     Active Substance: PAROXETINE HYDROCHLORIDE
     Route: 065
  25. SEROQUEL [Suspect]
     Active Substance: QUETIAPINE FUMARATE
     Indication: Product used for unknown indication
     Route: 065
  26. CIPROFLOXACIN [Suspect]
     Active Substance: CIPROFLOXACIN
     Indication: Nasopharyngitis
     Dosage: CIPROFLOXACIN HYDROCHLORIDE(2 DOSE ADMINISTERED)
     Route: 065
  27. CIPROFLOXACIN [Suspect]
     Active Substance: CIPROFLOXACIN
     Indication: Product used for unknown indication
     Route: 065
  28. CIPROFLOXACIN [Suspect]
     Active Substance: CIPROFLOXACIN
     Route: 065
  29. CIPROFLOXACIN [Suspect]
     Active Substance: CIPROFLOXACIN
     Dosage: 2 ADMINISTRATIONS
     Route: 065
  30. CIPROFLOXACIN [Suspect]
     Active Substance: CIPROFLOXACIN
     Dosage: NOT SPECIFIED
     Route: 065
  31. CIPROFLOXACIN [Suspect]
     Active Substance: CIPROFLOXACIN
     Route: 065
  32. CIPROFLOXACIN [Suspect]
     Active Substance: CIPROFLOXACIN
     Route: 065
  33. PIROXICAM [Suspect]
     Active Substance: PIROXICAM
     Indication: Product used for unknown indication
     Route: 065
  34. PIROXICAM [Suspect]
     Active Substance: PIROXICAM
     Route: 066
  35. QUETIAPINE [Suspect]
     Active Substance: QUETIAPINE
     Indication: Schizophrenia
     Dosage: QUETIAPINE
     Route: 048
  36. QUETIAPINE [Suspect]
     Active Substance: QUETIAPINE
     Indication: Product used for unknown indication
     Route: 048
  37. QUETIAPINE [Suspect]
     Active Substance: QUETIAPINE
     Route: 065
  38. QUETIAPINE [Suspect]
     Active Substance: QUETIAPINE
     Route: 048
  39. QUETIAPINE [Suspect]
     Active Substance: QUETIAPINE
     Dosage: QUETIAPINE FUMARATE
     Route: 048
  40. QUETIAPINE [Suspect]
     Active Substance: QUETIAPINE
     Route: 048
  41. QUETIAPINE [Suspect]
     Active Substance: QUETIAPINE
     Dosage: QUETIAPINE FUMARATE
     Route: 048
  42. QUETIAPINE [Suspect]
     Active Substance: QUETIAPINE
     Route: 016
  43. QUETIAPINE [Suspect]
     Active Substance: QUETIAPINE
     Route: 065
  44. QUETIAPINE [Suspect]
     Active Substance: QUETIAPINE
     Route: 065
  45. QUETIAPINE [Suspect]
     Active Substance: QUETIAPINE
     Route: 065
  46. QUETIAPINE [Suspect]
     Active Substance: QUETIAPINE
     Dosage: QUETIAPINE FUMARATE
     Route: 048
  47. QUETIAPINE [Suspect]
     Active Substance: QUETIAPINE
     Route: 065
  48. QUETIAPINE [Suspect]
     Active Substance: QUETIAPINE
     Dosage: QUETIAPINE FUMARATE
     Route: 065
  49. QUETIAPINE [Suspect]
     Active Substance: QUETIAPINE
     Route: 065
  50. QUETIAPINE [Suspect]
     Active Substance: QUETIAPINE
     Dosage: QUETIAPINE
     Route: 065
  51. QUETIAPINE [Suspect]
     Active Substance: QUETIAPINE
     Route: 016
  52. QUETIAPINE [Suspect]
     Active Substance: QUETIAPINE
     Route: 048
  53. QUETIAPINE [Suspect]
     Active Substance: QUETIAPINE
     Route: 048
  54. QUETIAPINE [Suspect]
     Active Substance: QUETIAPINE
     Route: 065
  55. QUETIAPINE [Suspect]
     Active Substance: QUETIAPINE
     Route: 065
  56. QUETIAPINE [Suspect]
     Active Substance: QUETIAPINE
     Route: 065
  57. QUETIAPINE [Suspect]
     Active Substance: QUETIAPINE
     Dosage: 2 ADMINISTRATIONS
     Route: 048
  58. QUETIAPINE [Suspect]
     Active Substance: QUETIAPINE
     Route: 048
  59. QUETIAPINE [Suspect]
     Active Substance: QUETIAPINE
     Route: 048
  60. QUETIAPINE [Suspect]
     Active Substance: QUETIAPINE
     Route: 016
  61. QUETIAPINE [Suspect]
     Active Substance: QUETIAPINE
     Route: 016
  62. QUETIAPINE [Suspect]
     Active Substance: QUETIAPINE
     Route: 065
  63. QUETIAPINE [Suspect]
     Active Substance: QUETIAPINE
     Route: 048
  64. SERTRALINE [Suspect]
     Active Substance: SERTRALINE HYDROCHLORIDE
     Indication: Product used for unknown indication
     Route: 065
  65. SERTRALINE [Suspect]
     Active Substance: SERTRALINE HYDROCHLORIDE
     Route: 048
  66. SERTRALINE [Suspect]
     Active Substance: SERTRALINE HYDROCHLORIDE
     Route: 065
  67. SERTRALINE [Suspect]
     Active Substance: SERTRALINE HYDROCHLORIDE
     Route: 048
  68. SERTRALINE [Suspect]
     Active Substance: SERTRALINE HYDROCHLORIDE
     Route: 065
  69. SERTRALINE [Suspect]
     Active Substance: SERTRALINE HYDROCHLORIDE
     Route: 048
  70. AZITHROMYCIN ANHYDROUS [Suspect]
     Active Substance: AZITHROMYCIN ANHYDROUS
     Indication: Product used for unknown indication
     Route: 065
  71. AZITHROMYCIN [Suspect]
     Active Substance: AZITHROMYCIN
     Indication: Product used for unknown indication
     Route: 065
  72. OLANZAPINE [Suspect]
     Active Substance: OLANZAPINE
     Indication: Product used for unknown indication
     Route: 065
  73. AMOXICILLIN [Concomitant]
     Active Substance: AMOXICILLIN
     Indication: Product used for unknown indication
  74. AMOXICILLIN [Concomitant]
     Active Substance: AMOXICILLIN
  75. RISPERIDONE [Concomitant]
     Active Substance: RISPERIDONE
     Indication: Product used for unknown indication
  76. DIVALPROEX SODIUM [Concomitant]
     Active Substance: DIVALPROEX SODIUM
     Indication: Product used for unknown indication
  77. ZYPREXA [Concomitant]
     Active Substance: OLANZAPINE
     Indication: Product used for unknown indication
  78. SERTRALINE [Concomitant]
     Active Substance: SERTRALINE HYDROCHLORIDE
     Indication: Product used for unknown indication
     Route: 048

REACTIONS (27)
  - Thermal burn [Unknown]
  - Toxicity to various agents [Unknown]
  - Wound [Unknown]
  - Renal impairment [Unknown]
  - Renal disorder [Unknown]
  - Obesity [Unknown]
  - Wound complication [Unknown]
  - Blood creatinine increased [Unknown]
  - Burning sensation [Unknown]
  - Haematocrit decreased [Unknown]
  - Haemoglobin decreased [Unknown]
  - Staphylococcal infection [Unknown]
  - Infection [Unknown]
  - Impaired healing [Unknown]
  - Flank pain [Unknown]
  - Pain [Unknown]
  - Diarrhoea [Unknown]
  - Weight increased [Unknown]
  - Memory impairment [Unknown]
  - Hallucinations, mixed [Unknown]
  - Hallucination, visual [Unknown]
  - Hallucination, auditory [Unknown]
  - Hypertension [Unknown]
  - Nausea [Unknown]
  - Treatment noncompliance [Unknown]
  - Wrong technique in product usage process [Unknown]
  - Off label use [Unknown]
